FAERS Safety Report 6313577-6 (Version None)
Quarter: 2009Q3

REPORT INFORMATION
  Report Type: 
  Country: None (occurrence: None)
  Receive Date: 20090818
  Receipt Date: 20090812
  Transmission Date: 20100115
  Serious: Yes (Death, Life-Threatening, Hospitalization)
  Sender: FDA-Public Use
  Company Number: FR-BRISTOL-MYERS SQUIBB COMPANY-14739247

PATIENT
  Age: 75 Year
  Sex: Female

DRUGS (8)
  1. AMIKLIN INJ [Suspect]
     Dosage: INTRAVENOUS INFUSION
     Route: 042
     Dates: end: 20090706
  2. HEPARIN [Suspect]
     Route: 042
     Dates: end: 20090707
  3. NEXIUM [Suspect]
     Dates: end: 20090709
  4. VANCOMYCIN HCL [Suspect]
     Dosage: INTRAVENOUS INFUSION
     Route: 042
     Dates: end: 20090709
  5. ROCEPHIN [Suspect]
     Dates: end: 20090709
  6. TAZOCILLINE [Suspect]
     Dosage: INTRAVENOUS INFUSION
     Route: 042
     Dates: end: 20090709
  7. HYDROCORTISONE HEMISUCCINATE [Suspect]
     Dosage: INTRAVENOUS INFUSION
     Route: 042
     Dates: start: 20090706, end: 20090709
  8. NOREPINEPHRINE BITARTRATE [Suspect]
     Indication: SEPTIC SHOCK
     Dates: end: 20090706

REACTIONS (4)
  - COLITIS ISCHAEMIC [None]
  - RECTAL HAEMORRHAGE [None]
  - SEPTIC SHOCK [None]
  - THROMBOCYTOPENIA [None]
